FAERS Safety Report 20981076 (Version 1)
Quarter: 2022Q2

REPORT INFORMATION
  Report Type: Spontaneous
  Country: US (occurrence: None)
  Receive Date: 20220620
  Receipt Date: 20220620
  Transmission Date: 20220721
  Serious: No
  Sender: FDA-Public Use
  Company Number: 2022A215758

PATIENT
  Sex: Female
  Weight: 73.5 kg

DRUGS (2)
  1. SYMBICORT [Suspect]
     Active Substance: BUDESONIDE\FORMOTEROL FUMARATE DIHYDRATE
     Indication: Bronchitis
     Dosage: 80/4.5MCG, 120 INHALATION INHALER, 2 INHALATIONS TWICE A DAY
     Route: 055
  2. SYMBICORT [Suspect]
     Active Substance: BUDESONIDE\FORMOTEROL FUMARATE DIHYDRATE
     Indication: Asthma
     Dosage: 80/4.5MCG, 120 INHALATION INHALER, 2 INHALATIONS TWICE A DAY
     Route: 055

REACTIONS (4)
  - Body height decreased [Unknown]
  - Product use issue [Unknown]
  - Device defective [Unknown]
  - Device issue [Unknown]
